FAERS Safety Report 4411281-2 (Version None)
Quarter: 2004Q3

REPORT INFORMATION
  Report Type: 
  Country: None (occurrence: None)
  Receive Date: 20040727
  Receipt Date: 20040712
  Transmission Date: 20050211
  Serious: No
  Sender: FDA-Public Use
  Company Number: 2004GB01702

PATIENT
  Age: 66 Year
  Sex: Female
  Weight: 64.4 kg

DRUGS (5)
  1. TAMOXIFEN CITRATE [Suspect]
     Indication: BREAST CANCER
     Dosage: 20 MG PO
     Route: 048
     Dates: start: 20040602
  2. SIMVASTATIN [Concomitant]
  3. ISOSORBIDE MONONITRATE [Concomitant]
  4. IRON SULPHATE [Concomitant]
  5. FUROSEMIDE [Concomitant]

REACTIONS (2)
  - CONDITION AGGRAVATED [None]
  - DIABETES MELLITUS [None]
